FAERS Safety Report 21265896 (Version 1)
Quarter: 2022Q3

REPORT INFORMATION
  Report Type: Spontaneous
  Country: FR (occurrence: FR)
  Receive Date: 20220829
  Receipt Date: 20220829
  Transmission Date: 20221027
  Serious: Yes (Hospitalization)
  Sender: FDA-Public Use
  Company Number: None

PATIENT
  Age: 78 Year
  Sex: Male
  Weight: 80.4 kg

DRUGS (1)
  1. AXITINIB [Suspect]
     Active Substance: AXITINIB
     Indication: Metastases to lung
     Dosage: 1MG 2/J
     Route: 048
     Dates: end: 202205

REACTIONS (6)
  - Confusional state [Recovered/Resolved]
  - Diarrhoea [Recovered/Resolved]
  - Adrenal insufficiency [Recovered/Resolved]
  - Hypothyroidism [Recovered/Resolved]
  - Acute kidney injury [Recovered/Resolved]
  - Autoimmune encephalopathy [Recovered/Resolved]

NARRATIVE: CASE EVENT DATE: 20220520
